FAERS Safety Report 8228898-X (Version None)
Quarter: 2012Q1

REPORT INFORMATION
  Report Type: 
  Country: None (occurrence: None)
  Receive Date: 20120322
  Receipt Date: 20120314
  Transmission Date: 20120608
  Serious: Yes (Other)
  Sender: FDA-Public Use
  Company Number: JP-SANOFI-AVENTIS-2012SA017464

PATIENT
  Age: 80 Year
  Sex: Male

DRUGS (4)
  1. LEUCOVORIN CALCIUM [Concomitant]
     Indication: COLON CANCER
     Dosage: ROUTE: DR
     Route: 041
     Dates: start: 20120301, end: 20120301
  2. OXALIPLATIN [Suspect]
     Indication: COLON CANCER
     Dosage: DOSE: 120 MG/ BODY
     Route: 041
     Dates: start: 20120301
  3. FLUOROURACIL [Suspect]
     Indication: COLON CANCER
     Dosage: DOSE: 575 MG/ BODY
     Route: 040
     Dates: start: 20120301, end: 20120301
  4. FLUOROURACIL [Suspect]
     Dosage: DOSE: 3750 MG/ BODY
     Route: 041
     Dates: start: 20120301

REACTIONS (1)
  - HYPERAMMONAEMIA [None]
